FAERS Safety Report 12080941 (Version 4)
Quarter: 2017Q2

REPORT INFORMATION
  Report Type: Spontaneous
  Country: US (occurrence: US)
  Receive Date: 20160216
  Receipt Date: 20170517
  Transmission Date: 20170829
  Serious: No
  Sender: FDA-Public Use
  Company Number: US-PFIZER INC-2016088516

PATIENT

DRUGS (1)
  1. CHILDRENS ADVIL [Suspect]
     Active Substance: IBUPROFEN
     Indication: PYREXIA

REACTIONS (2)
  - Drug ineffective [Unknown]
  - Pyrexia [Unknown]
